FAERS Safety Report 9826228 (Version 1)
Quarter: 2014Q1

REPORT INFORMATION
  Report Type: Spontaneous
  Country: GB (occurrence: GB)
  Receive Date: 20140117
  Receipt Date: 20140117
  Transmission Date: 20141002
  Serious: Yes (Other)
  Sender: FDA-Public Use
  Company Number: GB-009507513-1401GBR006433

PATIENT
  Sex: 0

DRUGS (1)
  1. TEMODAL [Suspect]
     Route: 048

REACTIONS (2)
  - Gastrostomy [Unknown]
  - Dysphagia [Unknown]
